FAERS Safety Report 8524503-3 (Version None)
Quarter: 2012Q3

REPORT INFORMATION
  Report Type: 
  Country: None (occurrence: None)
  Receive Date: 20120720
  Receipt Date: 20120711
  Transmission Date: 20120928
  Serious: Yes (Death, Hospitalization)
  Sender: FDA-Public Use
  Company Number: NL-ACTELION-A-CH2012-62455

PATIENT
  Sex: Female
  Weight: 52 kg

DRUGS (3)
  1. TRACLEER [Suspect]
     Dosage: 62.5 MG, BID
     Route: 048
     Dates: start: 20120301, end: 20120304
  2. TRACLEER [Suspect]
     Indication: DIGITAL ULCER
     Dosage: 62.5 MG, BID
     Route: 048
     Dates: start: 20010301, end: 20120227
  3. TRACLEER [Suspect]
     Dosage: 62.5 MG, OD
     Route: 048
     Dates: start: 20120229, end: 20120229

REACTIONS (9)
  - HYPOTENSION [None]
  - CACHEXIA [None]
  - ELECTROLYTE IMBALANCE [None]
  - ASTHENIA [None]
  - HYPOALBUMINAEMIA [None]
  - MYOCARDIAL INFARCTION [None]
  - MALABSORPTION [None]
  - RESPIRATORY TRACT INFECTION [None]
  - SUDDEN DEATH [None]
